FAERS Safety Report 13408667 (Version 2)
Quarter: 2018Q1

REPORT INFORMATION
  Report Type: Spontaneous
  Country: US (occurrence: US)
  Receive Date: 20170406
  Receipt Date: 20180118
  Transmission Date: 20180508
  Serious: No
  Sender: FDA-Public Use
  Company Number: US-JNJFOC-20170223317

PATIENT
  Sex: Male

DRUGS (6)
  1. RISPERDAL [Suspect]
     Active Substance: RISPERIDONE
     Indication: BIPOLAR DISORDER
     Dosage: DOSAGE VARYING FROM 0.5 MG TO 2 MG
     Route: 048
     Dates: start: 20010112, end: 20030820
  2. RISPERDAL [Suspect]
     Active Substance: RISPERIDONE
     Indication: AGGRESSION
     Dosage: DOSAGE VARYING FROM 0.5 MG TO 2 MG
     Route: 048
     Dates: start: 20010112, end: 20030820
  3. RISPERDAL [Suspect]
     Active Substance: RISPERIDONE
     Indication: POST-TRAUMATIC STRESS DISORDER
     Dosage: DOSAGE VARYING FROM 0.5 MG TO 2 MG
     Route: 048
     Dates: start: 20010112, end: 20030820
  4. RISPERDAL [Suspect]
     Active Substance: RISPERIDONE
     Indication: OPPOSITIONAL DEFIANT DISORDER
     Dosage: DOSAGE VARYING FROM 0.5 MG TO 2 MG
     Route: 048
     Dates: start: 20010112, end: 20030820
  5. RISPERDAL [Suspect]
     Active Substance: RISPERIDONE
     Indication: ATTENTION DEFICIT/HYPERACTIVITY DISORDER
     Dosage: DOSAGE VARYING FROM 0.5 MG TO 2 MG
     Route: 048
     Dates: start: 20010112, end: 20030820
  6. RISPERDAL [Suspect]
     Active Substance: RISPERIDONE
     Indication: REACTIVE ATTACHMENT DISORDER OF INFANCY OR EARLY CHILDHOOD
     Dosage: DOSAGE VARYING FROM 0.5 MG TO 2 MG
     Route: 048
     Dates: start: 20010112, end: 20030820

REACTIONS (2)
  - Gynaecomastia [Unknown]
  - Emotional disorder [Unknown]
